FAERS Safety Report 15133348 (Version 2)
Quarter: 2018Q3

REPORT INFORMATION
  Report Type: Report from Study
  Country: KR (occurrence: KR)
  Receive Date: 20180712
  Receipt Date: 20180713
  Transmission Date: 20181010
  Serious: Yes (Hospitalization)
  Sender: FDA-Public Use
  Company Number: KR-AMGEN-KORNI2018079360

PATIENT
  Age: 66 Year
  Sex: Female
  Weight: 46 kg

DRUGS (12)
  1. MUCOSTA [Concomitant]
     Active Substance: REBAMIPIDE
     Indication: PROPHYLAXIS
     Dosage: 1 DF (100 MG), BID
     Route: 048
     Dates: start: 20180313
  2. PYRIDOXINE [Concomitant]
     Active Substance: PYRIDOXINE
     Indication: VITAMIN B12 ABNORMAL
     Dosage: 1 DF (50 MG), QD
     Route: 048
     Dates: start: 20171026
  3. DENOSUMAB [Suspect]
     Active Substance: DENOSUMAB
     Indication: OSTEOPOROSIS POSTMENOPAUSAL
     Dosage: 60 MG, Q6MO
     Route: 058
     Dates: start: 20180403
  4. ADCAL [Concomitant]
     Active Substance: CALCIUM CARBONATE
     Indication: MINERAL SUPPLEMENTATION
     Dosage: 1 DF, QD
     Route: 048
     Dates: start: 20180403
  5. OMP [Concomitant]
     Active Substance: OMEPRAZOLE
     Indication: PROPHYLAXIS
     Dosage: 1 DF (20 MG), QD
     Route: 048
     Dates: start: 20180320
  6. FOLIC ACID. [Concomitant]
     Active Substance: FOLIC ACID
     Indication: VITAMIN SUPPLEMENTATION
     Dosage: 1 DF (1 MG), QD
     Route: 048
     Dates: start: 20171026
  7. PENNEL [Concomitant]
     Indication: HEPATITIS TOXIC
     Dosage: 1 DF, BID
     Route: 048
     Dates: start: 20180305
  8. DEPAS [Concomitant]
     Active Substance: ETIZOLAM
     Indication: INSOMNIA
     Dosage: 1 DF (0.25 MG), BID
     Route: 048
     Dates: start: 20180403
  9. CALCIUM [Concomitant]
     Active Substance: CALCIUM
     Dosage: UNK
  10. NAXEN?F [Concomitant]
     Indication: LYMPHADENITIS
     Dosage: 1 DF (500 MG), BID
     Route: 048
     Dates: start: 20180313
  11. SOLONDO [Concomitant]
     Active Substance: PREDNISOLONE
     Indication: LYMPHADENITIS
     Dosage: 3 DF (5 MG), QD
     Route: 048
     Dates: start: 20180403
  12. URSA [Concomitant]
     Active Substance: URSODIOL
     Indication: HEPATITIS TOXIC
     Dosage: 1 DF (100 MG), BID
     Route: 048
     Dates: start: 20180305

REACTIONS (1)
  - Spinal compression fracture [Recovered/Resolved]

NARRATIVE: CASE EVENT DATE: 20180426
